FAERS Safety Report 6973192-8 (Version None)
Quarter: 2010Q3

REPORT INFORMATION
  Report Type: 
  Country: None (occurrence: None)
  Receive Date: 20100909
  Receipt Date: 20100830
  Transmission Date: 20110219
  Serious: Yes (Death, Other)
  Sender: FDA-Public Use
  Company Number: JP-ROCHE-724706

PATIENT
  Sex: Male
  Weight: 54 kg

DRUGS (2)
  1. ACTEMRA [Suspect]
     Indication: PLEURAL MESOTHELIOMA
     Route: 041
     Dates: start: 20100827, end: 20100827
  2. PREDONINE [Concomitant]
     Route: 048

REACTIONS (3)
  - BRADYCARDIA [None]
  - CARDIAC ARREST [None]
  - HYPERKALAEMIA [None]
